FAERS Safety Report 10094490 (Version 1)
Quarter: 2014Q2

REPORT INFORMATION
  Report Type: Other
  Country: GB (occurrence: GB)
  Receive Date: 20140422
  Receipt Date: 20140422
  Transmission Date: 20141212
  Serious: Yes (Death, Hospitalization)
  Sender: FDA-Public Use
  Company Number: GB-TARO PHARMACEUTICALS U.S.A., INC-2014SUN00845

PATIENT
  Age: 89 Year
  Sex: Female

DRUGS (11)
  1. WARFARIN [Suspect]
     Indication: ATRIAL FIBRILLATION
     Route: 048
     Dates: end: 20131213
  2. CALCICHEW D3 [Concomitant]
  3. CETIRIZINE [Concomitant]
  4. CITALOPRAM [Concomitant]
  5. DIGOXIN [Concomitant]
  6. FUROSEMIDE [Concomitant]
  7. METFORMIN [Concomitant]
  8. MONTELUKAST [Concomitant]
  9. RABEPRAZOLE [Concomitant]
  10. SALBUTAMOL [Concomitant]
  11. SERETIDE [Concomitant]

REACTIONS (3)
  - Cerebral haemorrhage [Fatal]
  - Confusional state [Not Recovered/Not Resolved]
  - Hemiparesis [Not Recovered/Not Resolved]
